FAERS Safety Report 7721362-3 (Version None)
Quarter: 2011Q3

REPORT INFORMATION
  Report Type: 
  Country: None (occurrence: None)
  Receive Date: 20110831
  Receipt Date: 20110825
  Transmission Date: 20111222
  Serious: Yes (Other)
  Sender: FDA-Public Use
  Company Number: US-ROCHE-778588

PATIENT
  Sex: Female
  Weight: 62.6 kg

DRUGS (7)
  1. ALENDRONIC ACID [Suspect]
     Indication: OSTEOPOROSIS
     Route: 065
     Dates: start: 20090101, end: 20100101
  2. LIPITOR [Concomitant]
     Dosage: FREQUENCY: DAILY.
     Route: 048
  3. NAPRELAN [Concomitant]
     Dosage: 375 MG TAB ER 24 HRS 2 ORAL DAILY.
     Route: 048
  4. ATIVAN [Concomitant]
     Dosage: AS REQUIRED.
     Route: 048
     Dates: start: 20091230
  5. FOSAMAX [Suspect]
     Indication: OSTEOPOROSIS
     Route: 048
     Dates: start: 20030101, end: 20090101
  6. CHLORDIAZEPOXIDE HCL [Concomitant]
     Dosage: 1 ORAL 4 TIMES DAILY
     Route: 048
  7. BONIVA [Suspect]
     Indication: OSTEOPOROSIS
     Route: 048
     Dates: start: 20100225, end: 20101201

REACTIONS (4)
  - LOW TURNOVER OSTEOPATHY [None]
  - FEMUR FRACTURE [None]
  - EMOTIONAL DISTRESS [None]
  - ANXIETY [None]
